FAERS Safety Report 16887698 (Version 3)
Quarter: 2020Q1

REPORT INFORMATION
  Report Type: Spontaneous
  Country: GB (occurrence: GB)
  Receive Date: 20191005
  Receipt Date: 20200129
  Transmission Date: 20200409
  Serious: Yes (Hospitalization, Other)
  Sender: FDA-Public Use
  Company Number: GB-DRREDDYS-GER/UKI/19/0114673

PATIENT
  Age: 12 Year
  Sex: Male

DRUGS (13)
  1. IMATINIB. [Suspect]
     Active Substance: IMATINIB MESYLATE
     Indication: CHRONIC GRAFT VERSUS HOST DISEASE IN SKIN
  2. CEFUROXIME. [Concomitant]
     Active Substance: CEFUROXIME
     Indication: LOWER RESPIRATORY TRACT INFECTION
  3. CEFUROXIME. [Concomitant]
     Active Substance: CEFUROXIME
     Indication: PERICARDIAL DRAINAGE
  4. CYCLOPHOSPHAMIDE. [Concomitant]
     Active Substance: CYCLOPHOSPHAMIDE
     Indication: PROPHYLAXIS AGAINST GRAFT VERSUS HOST DISEASE
  5. IMATINIB. [Suspect]
     Active Substance: IMATINIB MESYLATE
     Indication: GRAFT VERSUS HOST DISEASE IN EYE
  6. IMATINIB. [Suspect]
     Active Substance: IMATINIB MESYLATE
     Indication: CHRONIC GRAFT VERSUS HOST DISEASE IN INTESTINE
  7. OXYGEN. [Concomitant]
     Active Substance: OXYGEN
     Indication: PNEUMONIA
  8. IMATINIB. [Suspect]
     Active Substance: IMATINIB MESYLATE
     Indication: CHRONIC GRAFT VERSUS HOST DISEASE IN LIVER
     Dates: start: 201710
  9. CLARITHROMYCIN. [Concomitant]
     Active Substance: CLARITHROMYCIN
     Indication: LOWER RESPIRATORY TRACT INFECTION
     Route: 042
  10. PREDNISOLONE. [Concomitant]
     Active Substance: PREDNISOLONE
     Indication: GRAFT VERSUS HOST DISEASE
  11. BASILIXIMAB [Concomitant]
     Active Substance: BASILIXIMAB
     Indication: PROPHYLAXIS AGAINST GRAFT VERSUS HOST DISEASE
  12. PARACETAMOL [Concomitant]
     Active Substance: ACETAMINOPHEN
     Indication: PAIN
  13. CEFUROXIME. [Concomitant]
     Active Substance: CEFUROXIME
     Indication: PNEUMONIA

REACTIONS (6)
  - Cardiomegaly [Recovered/Resolved]
  - Normocytic anaemia [Recovered/Resolved]
  - Off label use [Recovered/Resolved]
  - Pericardial effusion [Recovered/Resolved]
  - Right ventricular diastolic collapse [Recovered/Resolved]
  - Hepatomegaly [Recovered/Resolved]
